FAERS Safety Report 6867051-9 (Version None)
Quarter: 2010Q3

REPORT INFORMATION
  Report Type: 
  Country: None (occurrence: None)
  Receive Date: 20100722
  Receipt Date: 20100714
  Transmission Date: 20110219
  Serious: Yes (Hospitalization)
  Sender: FDA-Public Use
  Company Number: A0592274A

PATIENT
  Age: 74 Year
  Sex: Female

DRUGS (9)
  1. AVANDIA [Suspect]
     Dosage: 2MG PER DAY
     Route: 048
     Dates: start: 20050401
  2. METFORMIN [Suspect]
     Dosage: 500MG TWICE PER DAY
     Route: 048
     Dates: start: 20050401
  3. TRICOR [Concomitant]
  4. DIOVAN [Concomitant]
  5. LIPITOR [Concomitant]
  6. ASPIRIN [Concomitant]
  7. UNSPECIFIED MEDICATION [Concomitant]
  8. AVANDAMET [Concomitant]
     Indication: DIABETES MELLITUS
     Route: 048
     Dates: end: 20050401
  9. ASPIRIN [Concomitant]

REACTIONS (4)
  - BLOOD CREATININE DECREASED [None]
  - DIZZINESS [None]
  - PAIN [None]
  - STENT PLACEMENT [None]
